FAERS Safety Report 5240420-9 (Version None)
Quarter: 2007Q1

REPORT INFORMATION
  Report Type: 
  Country: None (occurrence: None)
  Receive Date: 20061208
  Receipt Date: 20060404
  Transmission Date: 20070707
  Serious: Yes (Other)
  Sender: FDA-Public Use
  Company Number: 2006UW04965

PATIENT
  Age: 57 Year
  Sex: Male
  Weight: 97.522 kg

DRUGS (3)
  1. CRESTOR [Suspect]
     Indication: BLOOD CHOLESTEROL INCREASED
  2. NIACIN [Concomitant]
  3. ASPIRIN [Concomitant]

REACTIONS (3)
  - GAIT DISTURBANCE [None]
  - MYALGIA [None]
  - RENAL PAIN [None]
